FAERS Safety Report 25616342 (Version 1)
Quarter: 2025Q3

REPORT INFORMATION
  Report Type: Spontaneous
  Country: EU (occurrence: EU)
  Receive Date: 20250729
  Receipt Date: 20250729
  Transmission Date: 20251021
  Serious: Yes (Other)
  Sender: RANBAXY
  Company Number: EU-SUN PHARMACEUTICAL INDUSTRIES LTD-2025RR-518869

PATIENT
  Age: 77 Year
  Sex: Female

DRUGS (1)
  1. LENALIDOMIDE [Suspect]
     Active Substance: LENALIDOMIDE
     Indication: T-cell lymphoma
     Route: 048
     Dates: start: 20231204, end: 20231219

REACTIONS (1)
  - Dermatitis exfoliative [Recovered/Resolved]

NARRATIVE: CASE EVENT DATE: 20231219
